FAERS Safety Report 10047663 (Version 3)
Quarter: 2014Q2

REPORT INFORMATION
  Report Type: Spontaneous
  Country: JP (occurrence: JP)
  Receive Date: 20140331
  Receipt Date: 20140429
  Transmission Date: 20141212
  Serious: Yes (Hospitalization)
  Sender: FDA-Public Use
  Company Number: JP-PFIZER INC-2014086230

PATIENT
  Age: 73 Year
  Sex: Male

DRUGS (1)
  1. INLYTA [Suspect]
     Dosage: 10 MG, DAILY
     Route: 048
     Dates: start: 20140219, end: 20140324

REACTIONS (1)
  - Cardiac failure [Recovered/Resolved]
